FAERS Safety Report 24773221 (Version 1)
Quarter: 2024Q4

REPORT INFORMATION
  Report Type: Report from Study
  Country: GR (occurrence: GR)
  Receive Date: 20241225
  Receipt Date: 20241225
  Transmission Date: 20250115
  Serious: Yes (Hospitalization, Other)
  Sender: TAKEDA
  Company Number: GR-TAKEDA-2024TUS127129

PATIENT
  Sex: Female

DRUGS (2)
  1. HUMAN IMMUNOGLOBULIN G\HYALURONIDASE RECOMBINANT HUMAN [Suspect]
     Active Substance: HUMAN IMMUNOGLOBULIN G\HYALURONIDASE (HUMAN RECOMBINANT)
     Indication: Immunodeficiency common variable
     Dosage: 250 MILLILITER
  2. GLUCOPHAGE [Concomitant]
     Active Substance: METFORMIN HYDROCHLORIDE
     Indication: Glucose tolerance impaired
     Dosage: 1000 MILLIGRAM, QD

REACTIONS (9)
  - Gastroenteritis [Recovering/Resolving]
  - Atypical pneumonia [Recovering/Resolving]
  - Injection site pain [Unknown]
  - Injection site discomfort [Unknown]
  - Inflammation [Unknown]
  - Female reproductive tract disorder [Recovering/Resolving]
  - Urinary tract disorder [Recovering/Resolving]
  - Skin disorder [Recovering/Resolving]
  - Hypersensitivity [Recovering/Resolving]
